FAERS Safety Report 7168482-2 (Version None)
Quarter: 2010Q4

REPORT INFORMATION
  Report Type: 
  Country: None (occurrence: None)
  Receive Date: 20101216
  Receipt Date: 20100111
  Transmission Date: 20110411
  Serious: No
  Sender: FDA-Public Use
  Company Number: US-AMGEN-TCS385112

PATIENT

DRUGS (5)
  1. ENBREL [Suspect]
     Indication: PSORIATIC ARTHROPATHY
     Dosage: 50 MG, QWK
  2. CALCITRIOL [Concomitant]
  3. MAGNESIUM OXIDE [Concomitant]
     Dosage: UNK UNK, UNK
  4. ZOLMITRIPTAN [Concomitant]
     Dosage: UNK UNK, UNK
  5. IRON AND VITAMIN C [Concomitant]
     Dosage: UNK UNK, UNK

REACTIONS (1)
  - RASH [None]
